FAERS Safety Report 6706572-6 (Version None)
Quarter: 2010Q2

REPORT INFORMATION
  Report Type: 
  Country: None (occurrence: None)
  Receive Date: 20100503
  Receipt Date: 20100429
  Transmission Date: 20101027
  Serious: Yes (Death, Hospitalization)
  Sender: FDA-Public Use
  Company Number: NL-ROCHE-589901

PATIENT
  Sex: Male

DRUGS (7)
  1. CAPECITABINE [Suspect]
     Indication: COLORECTAL CANCER
     Dosage: TDD: 2X 2000 MG
     Route: 048
     Dates: start: 20080603, end: 20080828
  2. BEVACIZUMAB [Suspect]
     Indication: COLORECTAL CANCER
     Route: 042
     Dates: start: 20080603, end: 20080828
  3. OXALIPLATIN [Suspect]
     Indication: COLORECTAL CANCER
     Route: 042
     Dates: start: 20080603, end: 20080828
  4. PARACETAMOL [Concomitant]
  5. NAPROXEN [Concomitant]
  6. OXYCODONE HCL [Concomitant]
  7. FENTANYL [Concomitant]

REACTIONS (2)
  - DYSPNOEA [None]
  - PNEUMONIA [None]
